FAERS Safety Report 8603365-X (Version None)
Quarter: 2012Q3

REPORT INFORMATION
  Report Type: 
  Country: None (occurrence: None)
  Receive Date: 20120806
  Receipt Date: 20120727
  Transmission Date: 20120928
  Serious: Yes (Other)
  Sender: FDA-Public Use
  Company Number: KAD201207-000404

PATIENT
  Age: 57 Year
  Sex: Female
  Weight: 46.72 kg

DRUGS (6)
  1. LISINOPRIL AND HYDROCHLOROTHIAZIDE [Concomitant]
  2. MINOCYCLINE HCL [Suspect]
     Indication: INFECTION
     Dosage: 200 MG, ORAL
     Route: 048
     Dates: start: 20120723
  3. TRIAZOLAM [Concomitant]
  4. RIBAVIRIN [Suspect]
     Indication: HEPATITIS C
     Dosage: 1000 MG (400/600 MG), ORAL
     Route: 048
     Dates: start: 20120101
  5. SULFAMETHOXAZOLE TMP (SULFAMETHOXAZOLE-TRIMETHOPRIM) [Suspect]
     Indication: INFECTION
     Dosage: ORAL
     Route: 048
     Dates: start: 20120723
  6. PEGASYS [Suspect]
     Indication: HEPATITIS C
     Dosage: 180 MCG/0.5ML, ONCE A WEEK, SUBCUTANEOUS)
     Route: 058
     Dates: start: 20120101

REACTIONS (13)
  - VULVOVAGINAL PRURITUS [None]
  - MALAISE [None]
  - ABDOMINAL DISCOMFORT [None]
  - DRY SKIN [None]
  - PRURITUS [None]
  - NAUSEA [None]
  - DIZZINESS [None]
  - ASTHENIA [None]
  - LOCALISED INFECTION [None]
  - HEADACHE [None]
  - IMPAIRED HEALING [None]
  - WEIGHT DECREASED [None]
  - VAGINITIS BACTERIAL [None]
